FAERS Safety Report 7949526-4 (Version None)
Quarter: 2011Q4

REPORT INFORMATION
  Report Type: 
  Country: None (occurrence: None)
  Receive Date: 20111130
  Receipt Date: 20111122
  Transmission Date: 20120403
  Serious: Yes (Other)
  Sender: FDA-Public Use
  Company Number: US-ALEXION-A201100730

PATIENT
  Sex: Male
  Weight: 81.179 kg

DRUGS (9)
  1. SOLIRIS [Suspect]
     Indication: PAROXYSMAL NOCTURNAL HAEMOGLOBINURIA
     Dosage: UNK
     Route: 042
     Dates: start: 20091027
  2. COUMADIN [Concomitant]
     Dosage: 2.5 MG, 5 DAYS PER WEEK
     Route: 048
  3. EXTRA STRENGTH TYLENOL [Concomitant]
     Dosage: UNK
  4. SOLIRIS [Suspect]
     Dosage: 1200 MG, Q12DAYS
     Route: 042
     Dates: start: 20110323
  5. COUMADIN [Concomitant]
     Indication: CEREBRAL ISCHAEMIA
     Dosage: 5 MG, 2 DAYS PER WEEK
     Route: 048
  6. GLUCOSAMINE/CHONDROITIN [Concomitant]
     Dosage: UNK
  7. AMBIEN [Concomitant]
     Dosage: UNK
  8. FOLIC ACID [Concomitant]
     Dosage: UNK
  9. ACETAMINOPHEN AND OXYCODONE HCL [Concomitant]
     Dosage: UNK

REACTIONS (2)
  - ARTHRALGIA [None]
  - RHEUMATOID ARTHRITIS [None]
